FAERS Safety Report 8567816-1 (Version None)
Quarter: 2012Q3

REPORT INFORMATION
  Report Type: 
  Country: None (occurrence: None)
  Receive Date: 20120803
  Receipt Date: 20120731
  Transmission Date: 20120928
  Serious: Yes (Other)
  Sender: FDA-Public Use
  Company Number: PL-PFIZER INC-2012144394

PATIENT
  Age: 53 Year
  Sex: Male
  Weight: 60 kg

DRUGS (5)
  1. LEVOTHYROXINE SODIUM [Concomitant]
     Dosage: 100 UNK, 1X/DAY IN THE MORNING
     Dates: start: 20040310
  2. CARDURA [Suspect]
     Indication: BENIGN PROSTATIC HYPERPLASIA
     Dosage: 4 MG, ONE TABLET ONCE DAILY
     Route: 048
     Dates: start: 20120419, end: 20120709
  3. ATORVASTATIN [Concomitant]
     Dosage: UNK, 1X/DAY
     Dates: start: 20080610
  4. PROTEVASC [Concomitant]
     Dosage: ONE TABLET, 2X/DAY
     Dates: start: 20090505
  5. ACLOTIN [Concomitant]
     Dosage: ONE TABLET, 2X/DAY
     Dates: start: 19970927

REACTIONS (7)
  - LIBIDO DECREASED [None]
  - OLIGURIA [None]
  - GYNAECOMASTIA [None]
  - OROPHARYNGEAL PAIN [None]
  - HEART RATE DECREASED [None]
  - WEIGHT INCREASED [None]
  - BLOOD PRESSURE DECREASED [None]
